FAERS Safety Report 14156874 (Version 2)
Quarter: 2018Q2

REPORT INFORMATION
  Report Type: Spontaneous
  Country: FR (occurrence: FR)
  Receive Date: 20171103
  Receipt Date: 20180502
  Transmission Date: 20180711
  Serious: Yes (Life-Threatening, Hospitalization, Other)
  Sender: FDA-Public Use
  Company Number: PHHY2017FR159143

PATIENT
  Sex: Male
  Weight: 4.64 kg

DRUGS (3)
  1. HALOPERIDOL. [Suspect]
     Active Substance: HALOPERIDOL
     Indication: FOETAL EXPOSURE DURING PREGNANCY
     Dosage: MATERNAL DOSE (50 MG, QW)
     Route: 064
  2. OLANZAPINE. [Suspect]
     Active Substance: OLANZAPINE
     Indication: FOETAL EXPOSURE DURING PREGNANCY
     Dosage: MATERNAL DOSE (15 MG AND 20 MG, QD)
     Route: 064
  3. INSULIN [Suspect]
     Active Substance: INSULIN NOS
     Indication: FOETAL EXPOSURE DURING PREGNANCY
     Dosage: MATERNAL DOSE UNKNOWN
     Route: 064

REACTIONS (11)
  - Toxicity to various agents [Unknown]
  - Coma [Unknown]
  - Neonatal respiratory distress [Unknown]
  - Drug level above therapeutic [Unknown]
  - Hypoglycaemia neonatal [Unknown]
  - Foetal exposure during pregnancy [Unknown]
  - Respiratory distress [Unknown]
  - Foetal heart rate abnormal [Unknown]
  - Hypotonia neonatal [Unknown]
  - Foetal arrhythmia [Unknown]
  - Tremor [Unknown]
